FAERS Safety Report 8440123-3 (Version None)
Quarter: 2012Q2

REPORT INFORMATION
  Report Type: 
  Country: None (occurrence: None)
  Receive Date: 20120615
  Receipt Date: 20120607
  Transmission Date: 20120825
  Serious: Yes (Life-Threatening)
  Sender: FDA-Public Use
  Company Number: JP-ROCHE-1042874

PATIENT
  Sex: Female

DRUGS (12)
  1. PREDNISOLONE [Concomitant]
     Indication: LYMPHOMA
     Route: 042
     Dates: start: 20111223, end: 20111224
  2. MAGMITT [Concomitant]
     Indication: BOWEL MOVEMENT IRREGULARITY
     Dates: start: 20111207
  3. CANDESARTAN CILEXETIL [Concomitant]
     Indication: HYPERTENSION
     Dates: start: 20111206
  4. ROSUVASTATIN [Concomitant]
     Indication: HYPERLIPIDAEMIA
     Dates: start: 20111206
  5. ONCOVIN [Concomitant]
     Indication: LYMPHOMA
     Route: 042
  6. MITOXANTRONE HYDROCHLORIDE [Concomitant]
     Indication: MALAISE
     Dosage: 1 MG OR 2 MG
     Route: 042
     Dates: start: 20111218, end: 20120106
  7. CYCLOPHOSPHAMIDE [Concomitant]
     Indication: LYMPHOMA
     Route: 042
     Dates: start: 20111224, end: 20111224
  8. CALBLOCK [Concomitant]
     Indication: HYPERTENSION
     Dates: start: 20111206
  9. RABEPRAZOLE SODIUM [Concomitant]
     Indication: PRODUCT USED FOR UNKNOWN INDICATION
     Dates: start: 20111206
  10. NEUTROGIN [Concomitant]
     Indication: NEUTROPHIL COUNT DECREASED
     Route: 058
     Dates: start: 20120102, end: 20120106
  11. RITUXIMAB [Suspect]
     Indication: LYMPHOMA
     Route: 042
     Dates: start: 20111223
  12. PIRARUBICIN HYDROCHLORIDE [Concomitant]
     Indication: LYMPHOMA
     Route: 042
     Dates: start: 20111224, end: 20111224

REACTIONS (1)
  - RECTAL PERFORATION [None]
